FAERS Safety Report 7054089-4 (Version None)
Quarter: 2010Q4

REPORT INFORMATION
  Report Type: 
  Country: None (occurrence: None)
  Receive Date: 20101020
  Receipt Date: 20101008
  Transmission Date: 20110411
  Serious: Yes (Hospitalization)
  Sender: FDA-Public Use
  Company Number: FR-KINGPHARMUSA00001-K201000947

PATIENT
  Age: 79 Year
  Sex: Male

DRUGS (13)
  1. ALTACE [Suspect]
     Indication: HYPERTENSION
     Dosage: 7.5 MG, QD
     Route: 048
  2. ALTACE [Suspect]
     Indication: LEFT VENTRICULAR FAILURE
  3. FRUSEMIDE [Suspect]
     Indication: FLUID OVERLOAD
     Dosage: 40 MG, QD
     Route: 048
  4. METFORMIN HCL [Suspect]
     Indication: DIABETES MELLITUS
     Dosage: 500 MG, TID
     Route: 048
  5. ATORVASTATIN [Suspect]
     Indication: HYPERCHOLESTEROLAEMIA
     Dosage: 20 MG, QD
     Route: 048
     Dates: end: 20100712
  6. BENDROFLUMETHIAZIDE [Suspect]
     Indication: POLYURIA
     Dosage: 2.5 MG, QD
     Route: 048
  7. OXYCONTIN [Suspect]
     Indication: PHANTOM PAIN
     Dosage: 40 MG, BID
     Route: 048
     Dates: end: 20100711
  8. OXYCONTIN [Suspect]
     Dosage: UNK
     Route: 048
     Dates: start: 20100713
  9. OXYCODONE HCL [Suspect]
     Indication: BREAKTHROUGH PAIN
     Dosage: 10 MG, TID OR QID
     Route: 048
     Dates: end: 20100712
  10. ASPIRIN [Concomitant]
  11. PARACETAMOL [Concomitant]
  12. PREGABALIN [Concomitant]
  13. DOXYCYCLINE [Concomitant]

REACTIONS (10)
  - BLOOD CREATINE PHOSPHOKINASE INCREASED [None]
  - CONFUSIONAL STATE [None]
  - DEHYDRATION [None]
  - ERYTHEMA [None]
  - HYPOPHAGIA [None]
  - LOSS OF CONSCIOUSNESS [None]
  - MIOSIS [None]
  - NARCOTIC INTOXICATION [None]
  - RENAL IMPAIRMENT [None]
  - SOMNOLENCE [None]
